FAERS Safety Report 9288187 (Version 2)
Quarter: 2013Q2

REPORT INFORMATION
  Report Type: Spontaneous
  Country: US (occurrence: US)
  Receive Date: 20130514
  Receipt Date: 20130614
  Transmission Date: 20140414
  Serious: Yes (Other)
  Sender: FDA-Public Use
  Company Number: US-BAYER-2013-058372

PATIENT
  Age: 26 Year
  Sex: Female

DRUGS (1)
  1. GADAVIST [Suspect]
     Indication: ARTHROGRAM
     Dosage: 4.5 ML, UNK
     Route: 042
     Dates: start: 20130502, end: 20130502

REACTIONS (5)
  - Urticaria [None]
  - Erythema [None]
  - Dyspnoea [None]
  - Chest discomfort [None]
  - Abdominal discomfort [None]
